FAERS Safety Report 10483196 (Version 2)
Quarter: 2014Q4

REPORT INFORMATION
  Report Type: Spontaneous
  Country: US (occurrence: US)
  Receive Date: 20140930
  Receipt Date: 20141002
  Transmission Date: 20150528
  Serious: No
  Sender: FDA-Public Use
  Company Number: US-BIOGENIDEC-2014BI099627

PATIENT
  Sex: Female

DRUGS (1)
  1. AVONEX [Suspect]
     Active Substance: INTERFERON BETA-1A
     Indication: MULTIPLE SCLEROSIS
     Route: 030
     Dates: start: 19990701

REACTIONS (7)
  - Fall [Recovered/Resolved]
  - Laceration [Recovered/Resolved]
  - Hearing impaired [Recovered/Resolved]
  - Influenza like illness [Recovered/Resolved]
  - Contusion [Recovered/Resolved]
  - Multiple sclerosis [Not Recovered/Not Resolved]
  - Animal bite [Recovered/Resolved]
